FAERS Safety Report 16601511 (Version 2)
Quarter: 2019Q4

REPORT INFORMATION
  Report Type: Spontaneous
  Country: US (occurrence: US)
  Receive Date: 20190720
  Receipt Date: 20191111
  Transmission Date: 20200122
  Serious: No
  Sender: FDA-Public Use
  Company Number: US-JNJFOC-20190721956

PATIENT
  Age: 20 Year
  Sex: Female
  Weight: 68.1 kg

DRUGS (1)
  1. CHILDRENS MOTRIN [Suspect]
     Active Substance: IBUPROFEN
     Indication: ANALGESIC THERAPY
     Dosage: USED 30 ML EACH DOSE EVERY 4 HOURS  FOR 3-4 DAYS
     Route: 048
     Dates: start: 20190613

REACTIONS (2)
  - Product administered to patient of inappropriate age [Unknown]
  - Throat irritation [Recovered/Resolved]

NARRATIVE: CASE EVENT DATE: 20190613
